FAERS Safety Report 21400287 (Version 1)
Quarter: 2022Q4

REPORT INFORMATION
  Report Type: Report from Study
  Country: CO (occurrence: CO)
  Receive Date: 20221002
  Receipt Date: 20221002
  Transmission Date: 20230112
  Serious: Yes (Life-Threatening, Hospitalization, Other)
  Sender: FDA-Public Use
  Company Number: CO-ABBVIE-4135479

PATIENT
  Age: 31 Year
  Sex: Female
  Weight: 43 kg

DRUGS (1)
  1. ZEMPLAR [Suspect]
     Active Substance: PARICALCITOL
     Indication: Hyperparathyroidism secondary
     Route: 042
     Dates: start: 20210406

REACTIONS (8)
  - Catheter placement [Recovered/Resolved]
  - Paracentesis [Recovering/Resolving]
  - Weight decreased [Not Recovered/Not Resolved]
  - Gastritis [Not Recovered/Not Resolved]
  - Cardiac disorder [Recovering/Resolving]
  - Ascites [Recovering/Resolving]
  - Gastritis [Recovering/Resolving]
  - Fat tissue decreased [Not Recovered/Not Resolved]

NARRATIVE: CASE EVENT DATE: 20220501
